FAERS Safety Report 13117954 (Version 2)
Quarter: 2017Q2

REPORT INFORMATION
  Report Type: Spontaneous
  Country: US (occurrence: US)
  Receive Date: 20170116
  Receipt Date: 20170406
  Transmission Date: 20170830
  Serious: No
  Sender: FDA-Public Use
  Company Number: US-JNJFOC-20161203118

PATIENT
  Age: 53 Year
  Sex: Male
  Weight: 74.39 kg

DRUGS (5)
  1. ZOLOFT [Concomitant]
     Active Substance: SERTRALINE HYDROCHLORIDE
     Indication: INTERMITTENT EXPLOSIVE DISORDER
     Dosage: ONCE DAILY IN THE MORNING
     Route: 065
     Dates: start: 20150705
  2. SEROQUEL [Concomitant]
     Active Substance: QUETIAPINE FUMARATE
     Indication: SCHIZOPHRENIA
     Dosage: ONCE AT BEDTIME
     Route: 065
     Dates: start: 20150915
  3. RISPERDAL CONSTA [Suspect]
     Active Substance: RISPERIDONE
     Indication: SCHIZOPHRENIA
     Route: 030
     Dates: start: 20161106
  4. SEROQUEL [Concomitant]
     Active Substance: QUETIAPINE FUMARATE
     Indication: INTERMITTENT EXPLOSIVE DISORDER
     Dosage: ONCE AT BEDTIME
     Route: 065
     Dates: start: 20150915
  5. ZOLOFT [Concomitant]
     Active Substance: SERTRALINE HYDROCHLORIDE
     Indication: SCHIZOPHRENIA
     Dosage: ONCE DAILY IN THE MORNING
     Route: 065
     Dates: start: 20150705

REACTIONS (2)
  - Drug dose omission [Unknown]
  - Product solubility abnormal [Unknown]

NARRATIVE: CASE EVENT DATE: 20161201
